FAERS Safety Report 8533861-5 (Version None)
Quarter: 2012Q3

REPORT INFORMATION
  Report Type: 
  Country: None (occurrence: None)
  Receive Date: 20120712
  Receipt Date: 20120627
  Transmission Date: 20120928
  Serious: Yes (Hospitalization, Other)
  Sender: FDA-Public Use
  Company Number: TPA2011A04251

PATIENT
  Age: 71 Year
  Sex: Male
  Weight: 88.2 kg

DRUGS (11)
  1. SPIRIVA [Concomitant]
  2. CALCIUM CARBONATE [Concomitant]
  3. TAK-491CLD (AZILSARTAN MEDOXOMIL WITH CHLORTALIDONE) [Suspect]
     Indication: ESSENTIAL HYPERTENSION
     Dosage: PER ORAL
     Route: 048
     Dates: start: 20110408, end: 20110708
  4. TAK-491CLD (AZILSARTAN MEDOXOMIL WITH CHLORTALIDONE) [Suspect]
     Indication: ESSENTIAL HYPERTENSION
     Dosage: PER ORAL
     Route: 048
     Dates: start: 20110712
  5. ZOCOR [Concomitant]
  6. PROVENTIL HFA (SALBUTAMOL) [Concomitant]
  7. LEVOXYL [Concomitant]
  8. COREG [Concomitant]
  9. ADVAIR HFA [Concomitant]
  10. LISIOPRIL (LISINOPRIL) [Concomitant]
  11. AMLODIPINE [Concomitant]

REACTIONS (8)
  - ISCHAEMIC CARDIOMYOPATHY [None]
  - RENAL FAILURE ACUTE [None]
  - GASTROENTERITIS SALMONELLA [None]
  - ATRIAL FIBRILLATION [None]
  - BENIGN PROSTATIC HYPERPLASIA [None]
  - HYPERLIPIDAEMIA [None]
  - EJECTION FRACTION DECREASED [None]
  - HYPOTHYROIDISM [None]
